FAERS Safety Report 25131301 (Version 1)
Quarter: 2025Q1

REPORT INFORMATION
  Report Type: Spontaneous
  Country: US (occurrence: US)
  Receive Date: 20250327
  Receipt Date: 20250327
  Transmission Date: 20250409
  Serious: Yes (Other)
  Sender: PROACTIV
  Company Number: US-The Proactiv LLC-2173793

PATIENT
  Age: 67 Year
  Sex: Female

DRUGS (3)
  1. PROACTIV SOLUTION DAILY PROTECTION PLUS SUNSCREEN SPF 30 [Suspect]
     Active Substance: AVOBENZONE\HOMOSALATE\OCTINOXATE\OCTISALATE\OXYBENZONE
  2. COSMETICS [Suspect]
     Active Substance: COSMETICS
  3. COSMETICS [Suspect]
     Active Substance: COSMETICS

REACTIONS (2)
  - Drug ineffective [Not Recovered/Not Resolved]
  - Skin cancer [Not Recovered/Not Resolved]
